FAERS Safety Report 8534876-3 (Version None)
Quarter: 2012Q3

REPORT INFORMATION
  Report Type: 
  Country: None (occurrence: None)
  Receive Date: 20120724
  Receipt Date: 20120713
  Transmission Date: 20120928
  Serious: Yes (Death, Hospitalization)
  Sender: FDA-Public Use
  Company Number: CH-CELGENEUS-151-21880-12061334

PATIENT
  Sex: Male

DRUGS (5)
  1. REVLIMID [Suspect]
     Indication: T-CELL LYMPHOMA
     Dosage: 25 MILLIGRAM
     Route: 048
     Dates: end: 20120527
  2. VALTREX [Concomitant]
     Dosage: 1000 MILLIGRAM
     Route: 065
  3. ATORVASTATIN CALCIUM [Concomitant]
     Dosage: 40 MILLIGRAM
     Route: 065
  4. MAGNESIUM SULFATE [Concomitant]
     Route: 065
  5. NALOXONE [Concomitant]
     Dosage: 1500 MILLIGRAM
     Route: 065

REACTIONS (2)
  - SEPSIS [None]
  - CONDITION AGGRAVATED [None]
